FAERS Safety Report 10021203 (Version 1)
Quarter: 2014Q1

REPORT INFORMATION
  Report Type: Spontaneous
  Country: US (occurrence: None)
  Receive Date: 20140318
  Receipt Date: 20140318
  Transmission Date: 20141002
  Serious: Yes (Disabling)
  Sender: FDA-Public Use
  Company Number: None

PATIENT
  Age: 62 Year
  Sex: Male
  Weight: 68.95 kg

DRUGS (1)
  1. SUBUTEX [Suspect]
     Indication: PAIN MANAGEMENT
     Dosage: 1/2 TAB ONCE DAILY TAKEN UNDER THE TONGUE

REACTIONS (6)
  - Candida infection [None]
  - Tongue discolouration [None]
  - Gastrooesophageal reflux disease [None]
  - Toothache [None]
  - Tongue discolouration [None]
  - Gingival pain [None]
